FAERS Safety Report 9099181 (Version 2)
Quarter: 2013Q2

REPORT INFORMATION
  Report Type: Spontaneous
  Country: CA (occurrence: CA)
  Receive Date: 20130214
  Receipt Date: 20130522
  Transmission Date: 20140414
  Serious: No
  Sender: FDA-Public Use
  Company Number: CA-B.I. PHARMACEUTICALS,INC./RIDGEFIELD-2012-BI-01410BP

PATIENT
  Sex: Female

DRUGS (1)
  1. MIRAPEX [Suspect]
     Indication: RESTLESS LEGS SYNDROME
     Dates: start: 19990803, end: 200506

REACTIONS (7)
  - Obsessive-compulsive disorder [Unknown]
  - Impulsive behaviour [Unknown]
  - Sudden onset of sleep [Unknown]
  - Weight increased [Unknown]
  - Eating disorder [Not Recovered/Not Resolved]
  - Attention deficit/hyperactivity disorder [Unknown]
  - Compulsive shopping [Unknown]
